FAERS Safety Report 18404382 (Version 2)
Quarter: 2020Q4

REPORT INFORMATION
  Report Type: Spontaneous
  Country: IL (occurrence: IL)
  Receive Date: 20201020
  Receipt Date: 20201023
  Transmission Date: 20210114
  Serious: Yes (Death, Other)
  Sender: FDA-Public Use
  Company Number: IL-ASTRAZENECA-2020SF34382

PATIENT
  Age: 48 Year
  Sex: Male

DRUGS (1)
  1. TAGRISSO [Suspect]
     Active Substance: OSIMERTINIB
     Indication: EGFR GENE MUTATION
     Dosage: 80.0MG UNKNOWN
     Route: 048
     Dates: start: 20200901, end: 20200921

REACTIONS (4)
  - Scleroderma [Unknown]
  - Malignant neoplasm progression [Fatal]
  - Drug ineffective [Fatal]
  - Metastases to central nervous system [Unknown]
